FAERS Safety Report 5470328-5 (Version None)
Quarter: 2007Q3

REPORT INFORMATION
  Report Type: 
  Country: None (occurrence: None)
  Receive Date: 20070925
  Receipt Date: 20070911
  Transmission Date: 20080115
  Serious: Yes (Other)
  Sender: FDA-Public Use
  Company Number: 17422

PATIENT
  Age: 23 Year
  Sex: Female

DRUGS (4)
  1. CARBOPLATIN [Suspect]
     Indication: OVARIAN CANCER
     Dates: start: 20060101, end: 20060401
  2. PROGYNOVA [Concomitant]
  3. LYRICA [Concomitant]
  4. LAMICTAL [Concomitant]

REACTIONS (1)
  - BONE INFARCTION [None]
